FAERS Safety Report 9793029 (Version 2)
Quarter: 2014Q1

REPORT INFORMATION
  Report Type: Spontaneous
  Country: JP (occurrence: JP)
  Receive Date: 20140102
  Receipt Date: 20140121
  Transmission Date: 20141002
  Serious: Yes (Other)
  Sender: FDA-Public Use
  Company Number: JP-PFIZER INC-2013371841

PATIENT
  Age: 70 Year
  Sex: Male

DRUGS (3)
  1. AMLODIN [Suspect]
     Indication: HYPERTENSION
     Dosage: 10 MG, DAILY
     Route: 048
  2. RENIVACE [Concomitant]
     Indication: HYPERTENSION
     Dosage: UNK
     Route: 048
  3. MAGMITT [Concomitant]
     Indication: HYPERTENSION
     Dosage: UNK
     Route: 048

REACTIONS (1)
  - Haemoglobin decreased [Unknown]
